FAERS Safety Report 24465183 (Version 1)
Quarter: 2024Q4

REPORT INFORMATION
  Report Type: Report from Study
  Country: US (occurrence: US)
  Receive Date: 20241018
  Receipt Date: 20241018
  Transmission Date: 20250115
  Serious: No
  Sender: ROCHE
  Company Number: US-ROCHE-3511656

PATIENT
  Age: 58 Year
  Sex: Male
  Weight: 79.8 kg

DRUGS (2)
  1. XOLAIR [Suspect]
     Active Substance: OMALIZUMAB
     Indication: Asthma
     Route: 058
     Dates: start: 202308
  2. XOLAIR [Suspect]
     Active Substance: OMALIZUMAB

REACTIONS (5)
  - Pneumonia [Unknown]
  - Respiratory syncytial virus infection [Unknown]
  - Influenza [Not Recovered/Not Resolved]
  - Illness [Unknown]
  - Immunosuppression [Unknown]
